FAERS Safety Report 16737409 (Version 1)
Quarter: 2019Q3

REPORT INFORMATION
  Report Type: Spontaneous
  Country: US (occurrence: US)
  Receive Date: 20190823
  Receipt Date: 20190823
  Transmission Date: 20191005
  Serious: No
  Sender: FDA-Public Use
  Company Number: US-ASTRAZENECA-2019SF02975

PATIENT
  Sex: Female

DRUGS (1)
  1. BYDUREON [Suspect]
     Active Substance: EXENATIDE
     Dosage: DOSAGE UNKNOWN UNKNOWN
     Route: 058

REACTIONS (5)
  - Weight decreased [Unknown]
  - Pruritus [Unknown]
  - Headache [Recovered/Resolved]
  - Mass [Unknown]
  - Nausea [Unknown]
